FAERS Safety Report 6554646-5 (Version None)
Quarter: 2010Q1

REPORT INFORMATION
  Report Type: 
  Country: None (occurrence: None)
  Receive Date: 20100127
  Receipt Date: 20100118
  Transmission Date: 20100710
  Serious: Yes (Other)
  Sender: FDA-Public Use
  Company Number: US-PFIZER INC-2009311817

PATIENT
  Sex: Female

DRUGS (2)
  1. NITROSTAT [Suspect]
     Indication: CARDIAC FAILURE
  2. TORSEMIDE [Concomitant]
     Dosage: UNK

REACTIONS (5)
  - CARDIAC PACEMAKER INSERTION [None]
  - DEAFNESS [None]
  - DRUG INEFFECTIVE [None]
  - HEADACHE [None]
  - PARAESTHESIA ORAL [None]
